FAERS Safety Report 23949093 (Version 2)
Quarter: 2024Q3

REPORT INFORMATION
  Report Type: Spontaneous
  Country: IT (occurrence: IT)
  Receive Date: 20240607
  Receipt Date: 20240714
  Transmission Date: 20241017
  Serious: Yes (Death, Hospitalization)
  Sender: AMGEN
  Company Number: IT-AMGEN-ITASP2024109858

PATIENT
  Age: 8 Year
  Sex: Female

DRUGS (1)
  1. RAVICTI [Suspect]
     Active Substance: GLYCEROL PHENYLBUTYRATE
     Indication: Ornithine transcarbamoylase deficiency
     Dosage: 2 MILLILITER, QD (0.5ML IN THE MORNING, 1 ML AT LUNCH, 0.5ML AT DINNER)
     Route: 065
     Dates: start: 202212

REACTIONS (5)
  - Encephalitis [Fatal]
  - Brain death [Fatal]
  - Vomiting [Unknown]
  - Ammonia abnormal [Unknown]
  - Pyrexia [Unknown]

NARRATIVE: CASE EVENT DATE: 20240504
